FAERS Safety Report 15357474 (Version 1)
Quarter: 2018Q3

REPORT INFORMATION
  Report Type: Spontaneous
  Country: US (occurrence: US)
  Receive Date: 20180830
  Receipt Date: 20180830
  Transmission Date: 20181010
  Serious: No
  Sender: FDA-Public Use
  Company Number: None

PATIENT
  Age: 32 Year
  Sex: Female
  Weight: 58.97 kg

DRUGS (1)
  1. MIRENA [Suspect]
     Active Substance: LEVONORGESTREL

REACTIONS (10)
  - Diarrhoea [None]
  - Anal incontinence [None]
  - Loss of personal independence in daily activities [None]
  - Quality of life decreased [None]
  - Suture rupture [None]
  - Abdominal discomfort [None]
  - Muscle spasms [None]
  - Vaginal discharge [None]
  - Haemorrhoid operation [None]
  - Complication associated with device [None]

NARRATIVE: CASE EVENT DATE: 20150512
